FAERS Safety Report 6012568-2 (Version None)
Quarter: 2008Q4

REPORT INFORMATION
  Report Type: 
  Country: None (occurrence: None)
  Receive Date: 20081218
  Receipt Date: 20081216
  Transmission Date: 20090506
  Serious: Yes (Other)
  Sender: FDA-Public Use
  Company Number: US-GILEAD-2008-0019515

PATIENT
  Sex: Male

DRUGS (16)
  1. LETAIRIS [Suspect]
     Indication: PULMONARY ARTERIAL HYPERTENSION
     Route: 048
     Dates: start: 20080419
  2. FUROSEMIDE [Concomitant]
  3. LISINOPRIL [Concomitant]
  4. METOPROLOL TARTRATE [Concomitant]
  5. SYNTHROID [Concomitant]
  6. ALLOPURINOL [Concomitant]
  7. LIPITOR [Concomitant]
  8. PREVACID [Concomitant]
  9. CYCLOBENZAPRINE HCL [Concomitant]
  10. HYDROCODONE BITARTRATE + ACETAMINOPHEN [Concomitant]
  11. DEXAMETHASONE [Concomitant]
  12. LUMIGAN [Concomitant]
  13. ALPHAGAN P [Concomitant]
  14. FOLIC ACID [Concomitant]
  15. VITAMIN B-12 [Concomitant]
  16. CENTRUM MVI [Concomitant]

REACTIONS (1)
  - DRUG INEFFECTIVE [None]
